FAERS Safety Report 5621928-0 (Version None)
Quarter: 2008Q1

REPORT INFORMATION
  Report Type: 
  Country: None (occurrence: None)
  Receive Date: 20080206
  Receipt Date: 20080125
  Transmission Date: 20080703
  Serious: Yes (Hospitalization)
  Sender: FDA-Public Use
  Company Number: 100#03#2008-00367

PATIENT
  Age: 36 Year
  Sex: Female

DRUGS (8)
  1. KETOROLAC (KETOROLAC) [Suspect]
     Indication: DRUG USE FOR UNKNOWN INDICATION
     Dosage: 30 MG (10 MIN AFTER INDUCTION)
  2. FENTANYL [Suspect]
     Indication: GENERAL ANAESTHESIA
     Dosage: 100 UG (INDUCTION) : 50 UG (10 MIN AFTER INDUCTION)
  3. NEOSTIGMINE (NEOSTIGMINE) [Suspect]
     Indication: NEUROMUSCULAR BLOCKADE
     Dosage: 2.5 MG
  4. CITALOPRAM HYDROBROMIDE [Suspect]
     Indication: DEPRESSION
  5. ATRACURIUM BESYLATE [Suspect]
     Indication: ENDOTRACHEAL INTUBATION
     Dosage: 40 MG
  6. GLYCOPYRRONIUM (GLYCOPYRRONIUM) [Suspect]
     Indication: ANAESTHESIA
  7. NITROUS OXIDE W/ OXYGEN [Suspect]
     Indication: ANAESTHESIA
  8. THIOPENTONE (THIOPENTAL) (THIOPENTONE) [Suspect]
     Indication: ANAESTHESIA
     Dosage: 450 MG

REACTIONS (6)
  - COMA [None]
  - CONVERSION DISORDER [None]
  - EYE MOVEMENT DISORDER [None]
  - GAZE PALSY [None]
  - NEUROLOGICAL EXAMINATION ABNORMAL [None]
  - POST PROCEDURAL COMPLICATION [None]
